FAERS Safety Report 10600292 (Version 1)
Quarter: 2014Q4

REPORT INFORMATION
  Report Type: Report from Study
  Country: BR (occurrence: BR)
  Receive Date: 20141123
  Receipt Date: 20141123
  Transmission Date: 20150529
  Serious: Yes (Death)
  Sender: FDA-Public Use
  Company Number: BR-ABBVIE-14K-020-1311480-00

PATIENT
  Sex: Female

DRUGS (1)
  1. HUMIRA [Suspect]
     Active Substance: ADALIMUMAB
     Indication: RHEUMATOID ARTHRITIS
     Route: 058
     Dates: start: 20091205

REACTIONS (3)
  - Dementia Alzheimer^s type [Unknown]
  - Respiratory failure [Fatal]
  - Cardiac arrest [Fatal]
